FAERS Safety Report 21931274 (Version 2)
Quarter: 2025Q2

REPORT INFORMATION
  Report Type: Spontaneous
  Country: US (occurrence: US)
  Receive Date: 20230131
  Receipt Date: 20250528
  Transmission Date: 20250717
  Serious: No
  Sender: CIPLA
  Company Number: US-CIPLA LTD.-2022US06251

PATIENT

DRUGS (5)
  1. ALBUTEROL [Suspect]
     Active Substance: ALBUTEROL
     Indication: Gastrooesophageal reflux disease
     Dosage: 0.18 MILLIGRAM, BID (2 PUMPS IN THE MORNING AND 2 PUMPS AT NIGHT)
     Route: 048
     Dates: start: 20210806
  2. ALBUTEROL [Suspect]
     Active Substance: ALBUTEROL
     Indication: Asthma
     Dosage: 0.18 MILLIGRAM, BID (2 PUMPS IN THE MORNING AND 2 PUMPS AT NIGHT)
     Route: 048
     Dates: start: 20220328
  3. ALBUTEROL [Suspect]
     Active Substance: ALBUTEROL
     Indication: Hypersensitivity
     Dosage: 0.18 MILLIGRAM, BID (2 PUMPS IN THE MORNING AND 2 PUMPS AT NIGHT)
     Route: 048
     Dates: start: 20220328
  4. PANTOPRAZOLE [Concomitant]
     Active Substance: PANTOPRAZOLE
     Indication: Product used for unknown indication
     Route: 065
  5. ACCUTANE [Concomitant]
     Active Substance: ISOTRETINOIN
     Indication: Product used for unknown indication
     Route: 065

REACTIONS (8)
  - Cough [Recovered/Resolved]
  - Device delivery system issue [Unknown]
  - Device maintenance issue [Unknown]
  - Product cleaning inadequate [Unknown]
  - Device malfunction [Unknown]
  - Off label use [Not Recovered/Not Resolved]
  - Product use in unapproved indication [Not Recovered/Not Resolved]
  - Wrong technique in device usage process [Unknown]

NARRATIVE: CASE EVENT DATE: 20210806
